FAERS Safety Report 22517615 (Version 1)
Quarter: 2023Q2

REPORT INFORMATION
  Report Type: Spontaneous
  Country: IT (occurrence: IT)
  Receive Date: 20230604
  Receipt Date: 20230604
  Transmission Date: 20230721
  Serious: Yes (Other)
  Sender: FDA-Public Use
  Company Number: IT-MINISAL02-926749

PATIENT
  Age: 7 Year
  Sex: Female
  Weight: 23 kg

DRUGS (1)
  1. IBUPROFEN [Suspect]
     Active Substance: IBUPROFEN
     Indication: Ear pain
     Dosage: 200 MILLIGRAM, 3 TIMES A DAY(200 MG EVERY 8 HOURS)
     Route: 048
     Dates: start: 20230519, end: 20230521

REACTIONS (1)
  - Haematemesis [Recovering/Resolving]

NARRATIVE: CASE EVENT DATE: 20230520
